FAERS Safety Report 6289376-0 (Version None)
Quarter: 2009Q3

REPORT INFORMATION
  Report Type: 
  Country: None (occurrence: None)
  Receive Date: 20090728
  Receipt Date: 20090728
  Transmission Date: 20100115
  Serious: No
  Sender: FDA-Public Use
  Company Number: None

PATIENT
  Age: 77 Year
  Sex: Female

DRUGS (1)
  1. CEFTRIAXONE [Suspect]
     Dosage: 2000 MG Q 24 H IV
     Route: 042
     Dates: start: 20081207, end: 20081216

REACTIONS (2)
  - HAEMATOMA [None]
  - PLATELET COUNT DECREASED [None]
